FAERS Safety Report 8851395 (Version 2)
Quarter: 2014Q3

REPORT INFORMATION
  Report Type: Report from Study
  Country: US (occurrence: US)
  Receive Date: 20121022
  Receipt Date: 20140822
  Transmission Date: 20150326
  Serious: Yes (Death, Hospitalization, Other)
  Sender: FDA-Public Use
  Company Number: US-ROCHE-1132031

PATIENT
  Age: 63 Year
  Sex: Male

DRUGS (3)
  1. XELODA [Suspect]
     Active Substance: CAPECITABINE
     Indication: CARCINOID SYNDROME
  2. TEMODAR [Concomitant]
     Active Substance: TEMOZOLOMIDE
     Route: 065
  3. XELODA [Suspect]
     Active Substance: CAPECITABINE
     Indication: HEPATIC CANCER
     Dosage: 14 DAYS ON, 14 DAYS OFF
     Route: 048
     Dates: start: 20110221, end: 20110306

REACTIONS (3)
  - Jaundice [Not Recovered/Not Resolved]
  - Neoplasm progression [Fatal]
  - Hepatic failure [Unknown]

NARRATIVE: CASE EVENT DATE: 20110225
